FAERS Safety Report 7785247-9 (Version None)
Quarter: 2011Q3

REPORT INFORMATION
  Report Type: 
  Country: None (occurrence: None)
  Receive Date: 20110929
  Receipt Date: 20110921
  Transmission Date: 20111222
  Serious: Yes (Hospitalization)
  Sender: FDA-Public Use
  Company Number: US-AMGEN-USASP2011048973

PATIENT
  Age: 68 Year
  Sex: Female

DRUGS (6)
  1. TELAPREVIR [Concomitant]
     Indication: HEPATITIS C
  2. PEGINTERFERON [Concomitant]
     Indication: HEPATITIS C
  3. RIBAVIRIN [Concomitant]
     Indication: HEPATITIS C
  4. ARANESP [Suspect]
     Dosage: 500 MUG, UNK
     Dates: start: 20110920
  5. ARANESP [Suspect]
     Indication: ANAEMIA
     Dosage: 50 MUG, UNK
     Dates: start: 20110913
  6. NEUPOGEN [Suspect]
     Indication: NEUTROPENIA
     Dosage: 300 MUG, UNK
     Dates: start: 20110920

REACTIONS (3)
  - HAEMOPTYSIS [None]
  - EPISTAXIS [None]
  - BLOOD URINE PRESENT [None]
